FAERS Safety Report 4790064-8 (Version None)
Quarter: 2005Q4

REPORT INFORMATION
  Report Type: 
  Country: None (occurrence: None)
  Receive Date: 20051006
  Receipt Date: 20050927
  Transmission Date: 20060501
  Serious: Yes (Hospitalization, Other)
  Sender: FDA-Public Use
  Company Number: US-JNJFOC-20050906679

PATIENT
  Age: 23 Year
  Sex: Female
  Weight: 58.97 kg

DRUGS (2)
  1. TOPAMAX [Suspect]
     Indication: MIGRAINE PROPHYLAXIS
     Route: 048
     Dates: start: 20050601, end: 20050801
  2. IMITREX [Concomitant]
     Indication: MIGRAINE

REACTIONS (7)
  - ABDOMINAL PAIN [None]
  - HEPATIC ENZYME INCREASED [None]
  - HEPATOTOXICITY [None]
  - NAUSEA [None]
  - NEPHROPATHY TOXIC [None]
  - RENAL FUNCTION TEST ABNORMAL [None]
  - VOMITING [None]
